FAERS Safety Report 5874636-5 (Version None)
Quarter: 2008Q3

REPORT INFORMATION
  Report Type: 
  Country: None (occurrence: None)
  Receive Date: 20080829
  Receipt Date: 20061016
  Transmission Date: 20090109
  Serious: Yes (Death, Hospitalization)
  Sender: FDA-Public Use
  Company Number: 2008S1011316

PATIENT
  Age: 45 Year
  Sex: Male

DRUGS (12)
  1. CLARITHROMYCIN [Suspect]
     Indication: LOWER RESPIRATORY TRACT INFECTION
     Dosage: 500 MG;ORAL; TWICE A DAY
     Route: 048
     Dates: start: 20060827, end: 20060902
  2. AMIODARONE HCL [Concomitant]
  3. DIGOXIN [Concomitant]
  4. DILTIAZEM [Concomitant]
  5. ENOXAPARIN SODIUM [Concomitant]
  6. FUROSEMIDE [Concomitant]
  7. LANSOPRAZOLE [Concomitant]
  8. PREDNISONE [Concomitant]
  9. RISEDRONATE SODIUM [Concomitant]
  10. SERETIDE (SERETIDE) [Concomitant]
  11. TIOTROPIUM (TIOTROPIUM) [Concomitant]
  12. RAMIPRIL [Concomitant]

REACTIONS (4)
  - CLOSTRIDIUM DIFFICILE TOXIN TEST POSITIVE [None]
  - DIARRHOEA [None]
  - PSEUDOMEMBRANOUS COLITIS [None]
  - SEPSIS [None]
